FAERS Safety Report 7458465-7 (Version None)
Quarter: 2011Q2

REPORT INFORMATION
  Report Type: 
  Country: None (occurrence: None)
  Receive Date: 20110504
  Receipt Date: 20110428
  Transmission Date: 20111010
  Serious: Yes (Hospitalization)
  Sender: FDA-Public Use
  Company Number: B0717006A

PATIENT
  Age: 63 Year
  Sex: Male

DRUGS (7)
  1. INSULIN GLARGINE [Concomitant]
  2. ALBUTEROL SULFATE AUTOHALER [Suspect]
     Indication: BRONCHITIS
     Route: 055
     Dates: start: 20110417
  3. INSULIN [Concomitant]
  4. PROPRANOLOL [Concomitant]
  5. PREDNISOLONE [Concomitant]
     Dosage: 50MG PER DAY
  6. METFORMIN [Concomitant]
  7. PARACETAMOL [Concomitant]

REACTIONS (3)
  - PALPITATIONS [None]
  - HYPERTENSION [None]
  - HYPERGLYCAEMIA [None]
